APPROVED DRUG PRODUCT: BUSPIRONE HYDROCHLORIDE
Active Ingredient: BUSPIRONE HYDROCHLORIDE
Strength: 5MG
Dosage Form/Route: TABLET;ORAL
Application: A075521 | Product #001 | TE Code: AB
Applicant: RUBICON RESEARCH LTD
Approved: Apr 5, 2002 | RLD: No | RS: No | Type: RX